FAERS Safety Report 12962623 (Version 3)
Quarter: 2016Q4

REPORT INFORMATION
  Report Type: Spontaneous
  Country: US (occurrence: US)
  Receive Date: 20161121
  Receipt Date: 20161220
  Transmission Date: 20170207
  Serious: No
  Sender: FDA-Public Use
  Company Number: US-009507513-1611USA009072

PATIENT
  Sex: Female
  Weight: 84.81 kg

DRUGS (1)
  1. NEXPLANON [Suspect]
     Active Substance: ETONOGESTREL
     Indication: CONTRACEPTION
     Dosage: 68MG IMPLANT, FREQUENCY: UNK
     Route: 059
     Dates: start: 201602

REACTIONS (3)
  - General symptom [Unknown]
  - Nipple disorder [Unknown]
  - Breast tenderness [Unknown]

NARRATIVE: CASE EVENT DATE: 2016
